FAERS Safety Report 8695146 (Version 2)
Quarter: 2013Q4

REPORT INFORMATION
  Report Type: Spontaneous
  Country: US (occurrence: US)
  Receive Date: 20120731
  Receipt Date: 20131106
  Transmission Date: 20140711
  Serious: Yes (Hospitalization, Disabling, Other)
  Sender: FDA-Public Use
  Company Number: US-009507513-1207USA010623

PATIENT
  Age: 70 Year
  Sex: 0

DRUGS (41)
  1. ZOCOR [Suspect]
     Route: 048
  2. METFORMIN [Suspect]
     Dosage: 500 MG, UNK
  3. METOPROLOL [Suspect]
     Dosage: 25 MG, BID
     Route: 048
  4. CLOZAPINE [Suspect]
  5. LUMIGAN [Suspect]
  6. PRAVASTATIN SODIUM [Suspect]
  7. OXYCODONE [Suspect]
  8. VICODIN [Suspect]
  9. CYCLOSPORINE [Suspect]
  10. GLUCOPHAGE [Suspect]
  11. CODEINE [Suspect]
  12. MOTRIN [Suspect]
  13. VIAGRA [Suspect]
  14. COREG [Suspect]
  15. LUVOX [Suspect]
  16. PROZAC [Suspect]
  17. LIPITOR [Suspect]
  18. XALATAN [Suspect]
     Dosage: 200 MG, PRN
     Route: 047
  19. ADVIL [Suspect]
  20. ALPRAZOLAM [Suspect]
  21. TRAMADOL HYDROCHLORIDE [Suspect]
  22. TOPROL XL TABLETS [Suspect]
  23. PROSCAR [Suspect]
     Route: 048
  24. REGLAN [Suspect]
  25. PLAVIX [Suspect]
  26. LOTRIMIN AF [Suspect]
  27. ZETIA [Suspect]
     Route: 048
  28. ALLOPURINOL [Concomitant]
  29. DIAZEPAM [Concomitant]
  30. DIGOXIN [Concomitant]
  31. LOSARTAN POTASSIUM [Concomitant]
  32. ASPIRIN [Concomitant]
  33. THERA TEARS [Concomitant]
  34. FOLIC ACID [Concomitant]
  35. PILOCARPINE [Concomitant]
  36. ISTALOL [Concomitant]
  37. BILBERRY [Concomitant]
  38. FUROSEMIDE [Concomitant]
  39. POTASSIUM CHLORIDE [Concomitant]
  40. LANTUS [Concomitant]
  41. OMEGA-3 MARINE TRIGLYCERIDES [Concomitant]

REACTIONS (12)
  - Asthenia [Unknown]
  - Vomiting [Unknown]
  - Nausea [Unknown]
  - Fatigue [Unknown]
  - Dyspnoea [Unknown]
  - Sleep disorder [Unknown]
  - Skin irritation [Unknown]
  - Blood glucose increased [Unknown]
  - Back pain [Unknown]
  - Abasia [Unknown]
  - Myalgia [Unknown]
  - Constipation [Unknown]
